FAERS Safety Report 9205025 (Version 1)
Quarter: 2013Q2

REPORT INFORMATION
  Report Type: Spontaneous
  Country: US (occurrence: None)
  Receive Date: 20130401
  Receipt Date: 20130401
  Transmission Date: 20140414
  Serious: Yes (Other)
  Sender: FDA-Public Use
  Company Number: None

PATIENT
  Age: 45 Year
  Sex: Male
  Weight: 125.65 kg

DRUGS (1)
  1. LANTUS [Suspect]
     Indication: DIABETES MELLITUS
     Dates: start: 20070501, end: 20110510

REACTIONS (4)
  - Colitis ulcerative [None]
  - Arthritis [None]
  - Irritable bowel syndrome [None]
  - Disease recurrence [None]
